FAERS Safety Report 8145480-3 (Version None)
Quarter: 2012Q1

REPORT INFORMATION
  Report Type: 
  Country: None (occurrence: None)
  Receive Date: 20120217
  Receipt Date: 20120209
  Transmission Date: 20120608
  Serious: Yes (Disabling)
  Sender: FDA-Public Use
  Company Number: MX-UCBSA-051514

PATIENT
  Age: 40 Year
  Sex: Male
  Weight: 84.5 kg

DRUGS (3)
  1. CERTOLIZUMAB PEGOL [Suspect]
     Indication: SPONDYLITIS
     Dosage: CZP 200
     Route: 058
     Dates: end: 20110615
  2. INDOMETACINA [Concomitant]
     Indication: SPONDYLITIS
     Dosage: 25 MG DAILY
     Route: 048
     Dates: start: 20020101
  3. TRAMADOL HCL [Concomitant]
     Indication: SPONDYLITIS
     Dosage: 3 MG DAILY
     Route: 048
     Dates: start: 20020101

REACTIONS (2)
  - RETINAL VEIN OCCLUSION [None]
  - VISUAL ACUITY REDUCED [None]
